FAERS Safety Report 14575657 (Version 2)
Quarter: 2018Q2

REPORT INFORMATION
  Report Type: Spontaneous
  Country: JP (occurrence: JP)
  Receive Date: 20180227
  Receipt Date: 20180406
  Transmission Date: 20180711
  Serious: Yes (Other)
  Sender: FDA-Public Use
  Company Number: JP-SUN PHARMACEUTICAL INDUSTRIES LTD-2018R1-163680

PATIENT
  Age: 72 Year
  Sex: Male

DRUGS (1)
  1. BICALUTAMIDE. [Suspect]
     Active Substance: BICALUTAMIDE
     Indication: PROSTATE CANCER METASTATIC
     Dosage: 80 MG, DAILY
     Route: 065

REACTIONS (2)
  - Anti-androgen withdrawal syndrome [Unknown]
  - Prostatic specific antigen increased [Recovered/Resolved]
